FAERS Safety Report 25165665 (Version 1)
Quarter: 2025Q2

REPORT INFORMATION
  Report Type: Spontaneous
  Country: CA (occurrence: CA)
  Receive Date: 20250407
  Receipt Date: 20250407
  Transmission Date: 20250716
  Serious: Yes (Hospitalization)
  Sender: CELLTRION
  Company Number: CA-PFIZER INC-202500067769

PATIENT

DRUGS (2)
  1. INFLECTRA [Suspect]
     Active Substance: INFLIXIMAB-DYYB
     Indication: Colitis ulcerative
     Route: 042
     Dates: start: 20250227
  2. INFLECTRA [Suspect]
     Active Substance: INFLIXIMAB-DYYB
     Route: 042
     Dates: start: 20250326

REACTIONS (5)
  - Fall [Recovered/Resolved]
  - Muscular weakness [Recovered/Resolved]
  - Spinal column injury [Recovered/Resolved]
  - Intervertebral disc injury [Recovered/Resolved]
  - Vein rupture [Unknown]

NARRATIVE: CASE EVENT DATE: 20250326
